FAERS Safety Report 10007092 (Version 2)
Quarter: 2014Q1

REPORT INFORMATION
  Report Type: Spontaneous
  Country: US (occurrence: US)
  Receive Date: 20140313
  Receipt Date: 20140313
  Transmission Date: 20141002
  Serious: No
  Sender: FDA-Public Use
  Company Number: US-GILEAD-2012-0066429

PATIENT
  Sex: Female

DRUGS (2)
  1. LETAIRIS [Suspect]
     Indication: COR PULMONALE CHRONIC
     Dosage: 10 MG, QD
     Dates: start: 20121205
  2. TYVASO [Concomitant]

REACTIONS (9)
  - Oxygen supplementation [Unknown]
  - Sleep disorder [Unknown]
  - Cough [Unknown]
  - Unevaluable event [Unknown]
  - Insomnia [Unknown]
  - Dyspnoea [Unknown]
  - Dyspnoea [Unknown]
  - No therapeutic response [Unknown]
  - Oedema [Unknown]
